FAERS Safety Report 10265654 (Version 1)
Quarter: 2014Q2

REPORT INFORMATION
  Report Type: Spontaneous
  Country: US (occurrence: None)
  Receive Date: 20140625
  Receipt Date: 20140625
  Transmission Date: 20141212
  Serious: Yes (Other)
  Sender: FDA-Public Use
  Company Number: None

PATIENT
  Age: 66 Year
  Sex: Female
  Weight: 68.04 kg

DRUGS (3)
  1. XENAZINE [Suspect]
     Indication: TARDIVE DYSKINESIA
     Route: 048
     Dates: start: 201306, end: 201312
  2. XENAZINE [Suspect]
     Indication: MYOCLONUS
     Route: 048
     Dates: start: 201306, end: 201312
  3. L-LYSINE (KANER-SORE) [Concomitant]

REACTIONS (7)
  - Hyperhidrosis [None]
  - Movement disorder [None]
  - Muscle spasms [None]
  - Muscle twitching [None]
  - Dyskinesia [None]
  - Tremor [None]
  - Muscle twitching [None]
